FAERS Safety Report 19422092 (Version 1)
Quarter: 2021Q2

REPORT INFORMATION
  Report Type: Spontaneous
  Country: US (occurrence: US)
  Receive Date: 20210615
  Receipt Date: 20210615
  Transmission Date: 20210717
  Serious: Yes (Hospitalization)
  Sender: FDA-Public Use
  Company Number: None

PATIENT
  Age: 29 Year
  Sex: Female

DRUGS (2)
  1. OPSUMIT [Suspect]
     Active Substance: MACITENTAN
     Indication: PULMONARY ARTERIAL HYPERTENSION
     Route: 048
     Dates: start: 20170127
  2. REMODULIN [Suspect]
     Active Substance: TREPROSTINIL

REACTIONS (6)
  - Dyspnoea exertional [None]
  - Physical deconditioning [None]
  - Oxygen saturation decreased [None]
  - Musculoskeletal chest pain [None]
  - Compression fracture [None]
  - Bedridden [None]

NARRATIVE: CASE EVENT DATE: 20210517
